FAERS Safety Report 5947194-4 (Version None)
Quarter: 2008Q4

REPORT INFORMATION
  Report Type: 
  Country: None (occurrence: None)
  Receive Date: 20081110
  Receipt Date: 20081028
  Transmission Date: 20090506
  Serious: Yes (Life-Threatening, Hospitalization)
  Sender: FDA-Public Use
  Company Number: RO-ELI_LILLY_AND_COMPANY-RO200809005270

PATIENT
  Sex: Male
  Weight: 105 kg

DRUGS (2)
  1. ZYPREXA [Suspect]
     Indication: SCHIZOPHRENIA
     Dosage: 10 MG, DAILY (1/D)
     Dates: start: 20030801
  2. RIVOTRIL [Concomitant]
     Dosage: 2 MG, DAILY (1/D)

REACTIONS (1)
  - BRAIN NEOPLASM [None]
